FAERS Safety Report 10248465 (Version 3)
Quarter: 2014Q4

REPORT INFORMATION
  Report Type: Spontaneous
  Country: IT (occurrence: IT)
  Receive Date: 20140620
  Receipt Date: 20141014
  Transmission Date: 20150528
  Serious: Yes (Other)
  Sender: FDA-Public Use
  Company Number: IT-BRISTOL-MYERS SQUIBB COMPANY-20977567

PATIENT
  Age: 85 Year
  Sex: Female

DRUGS (7)
  1. SIVASTIN [Concomitant]
     Active Substance: SIMVASTATIN
     Dosage: 20 MG TABS
     Route: 048
  2. COUMADIN [Suspect]
     Active Substance: WARFARIN SODIUM
     Indication: ATRIAL FIBRILLATION
     Dosage: INT ON 12MAY2014
     Route: 048
     Dates: start: 19980507
  3. RATACAND [Concomitant]
     Active Substance: CANDESARTAN
     Dosage: 16MG TABS
     Route: 048
  4. ANTRA [Concomitant]
     Active Substance: OMEPRAZOLE
     Dosage: 20MG CAPS
  5. CARDURA [Concomitant]
     Active Substance: DOXAZOSIN MESYLATE
     Dosage: 2 MG TABS
     Route: 048
  6. LASIX [Concomitant]
     Active Substance: FUROSEMIDE
     Dosage: STRENGTH:25 MG TABS
     Route: 048
  7. METFORAL [Concomitant]
     Active Substance: METFORMIN HYDROCHLORIDE
     Dosage: 500 MG TABS
     Route: 048

REACTIONS (2)
  - Anaemia [Recovered/Resolved]
  - International normalised ratio increased [Unknown]

NARRATIVE: CASE EVENT DATE: 20140513
